FAERS Safety Report 6744158-8 (Version None)
Quarter: 2010Q2

REPORT INFORMATION
  Report Type: 
  Country: None (occurrence: None)
  Receive Date: 20100527
  Receipt Date: 20100518
  Transmission Date: 20101027
  Serious: Yes (Hospitalization)
  Sender: FDA-Public Use
  Company Number: US-ASTRAZENECA-2010SE15782

PATIENT
  Age: 869 Month
  Sex: Female
  Weight: 63.5 kg

DRUGS (4)
  1. SYMBICORT [Suspect]
     Dosage: 160/4.5, 2 PUFFS BID
     Route: 055
     Dates: start: 20091201
  2. SYMBICORT [Suspect]
     Dosage: 160/4.5 MCG ONE PUFF TID
     Route: 055
  3. CRESTOR [Suspect]
     Route: 048
  4. VENATLIN [Concomitant]
     Route: 065

REACTIONS (5)
  - DYSPHONIA [None]
  - ILL-DEFINED DISORDER [None]
  - MUSCLE SPASMS [None]
  - MYALGIA [None]
  - TREMOR [None]
